FAERS Safety Report 20693256 (Version 3)
Quarter: 2022Q4

REPORT INFORMATION
  Report Type: Spontaneous
  Country: PK (occurrence: PK)
  Receive Date: 20220410
  Receipt Date: 20221229
  Transmission Date: 20230113
  Serious: Yes (Other)
  Sender: FDA-Public Use
  Company Number: PK-PFIZER INC-2021367706

PATIENT
  Age: 60 Year
  Sex: Male
  Weight: 46 kg

DRUGS (9)
  1. ENBREL [Suspect]
     Active Substance: ETANERCEPT
     Indication: Psoriatic arthropathy
     Dosage: 50 MG, WEEKLY
     Route: 058
     Dates: start: 202104
  2. DELTACORTRIL [Concomitant]
     Active Substance: PREDNISOLONE
     Dosage: 5 MG, (2+1+0, FOR 2 WEEKS THEN STOP)
  3. ETORICOXIB [Concomitant]
     Active Substance: ETORICOXIB
     Dosage: 60 MG, (1+0, WHEN NEEDED)
  4. Distalgesic [Concomitant]
     Dosage: 1+1
  5. LEFLUNOMIDE [Concomitant]
     Active Substance: LEFLUNOMIDE
     Dosage: 20 MG, 1+0
  6. ESCITALOPRAM OXALATE [Concomitant]
     Active Substance: ESCITALOPRAM OXALATE
     Dosage: 10 MG, HALF FOR 1 WEEK AND THEN 1 CONTINUE
  7. EDONAX [Concomitant]
     Dosage: UNK, X 3MONTHS
  8. NUBEROL [Concomitant]
     Dosage: UNK
  9. LEFLUNOMIDE [Concomitant]
     Active Substance: LEFLUNOMIDE
     Dosage: UNK

REACTIONS (4)
  - C-reactive protein increased [Unknown]
  - Arthralgia [Recovering/Resolving]
  - Rash [Recovering/Resolving]
  - Inflammatory marker increased [Unknown]
